FAERS Safety Report 7425783-8 (Version None)
Quarter: 2011Q2

REPORT INFORMATION
  Report Type: 
  Country: None (occurrence: None)
  Receive Date: 20110420
  Receipt Date: 20110408
  Transmission Date: 20111010
  Serious: Yes (Disabling)
  Sender: FDA-Public Use
  Company Number: FI-SANOFI-AVENTIS-2011SA022011

PATIENT
  Sex: Male

DRUGS (4)
  1. MAREVAN FORTE [Concomitant]
     Dosage: 7.5 MG A DAY EXECPT ON THURSDAYS 5 MG A DAY
     Route: 048
  2. MELATONIN [Concomitant]
     Route: 048
  3. MULTAQ [Suspect]
     Indication: ATRIAL FIBRILLATION
     Route: 048
     Dates: start: 20110404
  4. ORLOC [Concomitant]
     Route: 048

REACTIONS (6)
  - MALAISE [None]
  - PHYSICAL DISABILITY [None]
  - HEADACHE [None]
  - NAUSEA [None]
  - COUGH [None]
  - FEELING COLD [None]
